FAERS Safety Report 19232872 (Version 2)
Quarter: 2021Q3

REPORT INFORMATION
  Report Type: Report from Study
  Country: US (occurrence: US)
  Receive Date: 20210507
  Receipt Date: 20210727
  Transmission Date: 20211014
  Serious: Yes (Other)
  Sender: FDA-Public Use
  Company Number: US-EMD SERONO-9235551

PATIENT
  Age: 66 Year
  Sex: Female

DRUGS (1)
  1. REBIF [Suspect]
     Active Substance: INTERFERON BETA-1A
     Indication: PRODUCT USED FOR UNKNOWN INDICATION
     Route: 058
     Dates: start: 20030925

REACTIONS (3)
  - Hypoaesthesia [Unknown]
  - Cervical spinal stenosis [Unknown]
  - Paraesthesia [Unknown]

NARRATIVE: CASE EVENT DATE: 202101
